FAERS Safety Report 11794922 (Version 4)
Quarter: 2016Q2

REPORT INFORMATION
  Report Type: Report from Study
  Country: JP (occurrence: JP)
  Receive Date: 20151202
  Receipt Date: 20160414
  Transmission Date: 20160815
  Serious: Yes (Hospitalization, Other)
  Sender: FDA-Public Use
  Company Number: JP-CELGENE-JPN-2015071054

PATIENT
  Age: 68 Year
  Sex: Female

DRUGS (31)
  1. POMALYST [Suspect]
     Active Substance: POMALIDOMIDE
     Route: 048
     Dates: start: 20150818, end: 20150902
  2. LENADEX [Suspect]
     Active Substance: DEXAMETHASONE ACETATE
     Route: 048
     Dates: start: 20150818, end: 20150825
  3. LENADEX [Suspect]
     Active Substance: DEXAMETHASONE ACETATE
     Route: 048
     Dates: start: 20150928, end: 20151019
  4. LOXOPROFEN [Concomitant]
     Active Substance: LOXOPROFEN
     Indication: PRODUCT USED FOR UNKNOWN INDICATION
     Route: 048
  5. MAGMITT [Concomitant]
     Active Substance: MAGNESIUM OXIDE
     Indication: PROPHYLAXIS
     Route: 048
  6. POMALYST [Suspect]
     Active Substance: POMALIDOMIDE
     Route: 048
  7. POMALYST [Suspect]
     Active Substance: POMALIDOMIDE
     Route: 048
     Dates: start: 20151231, end: 20160104
  8. LENADEX [Suspect]
     Active Substance: DEXAMETHASONE ACETATE
     Indication: PLASMA CELL MYELOMA RECURRENT
     Route: 048
     Dates: start: 20150611, end: 20150611
  9. LENADEX [Suspect]
     Active Substance: DEXAMETHASONE ACETATE
     Route: 048
     Dates: start: 20151231, end: 20151231
  10. BAKTAR [Suspect]
     Active Substance: SULFAMETHOXAZOLE\TRIMETHOPRIM
     Indication: PRODUCT USED FOR UNKNOWN INDICATION
     Route: 048
  11. BAYASPIRIN [Concomitant]
     Active Substance: ASPIRIN
     Indication: PROPHYLAXIS
     Dosage: 100 MILLIGRAM
     Route: 048
     Dates: start: 20150610
  12. OXYCONTIN [Concomitant]
     Active Substance: OXYCODONE HYDROCHLORIDE
     Indication: PRODUCT USED FOR UNKNOWN INDICATION
     Route: 048
  13. LANSOPRAZOLE-OD [Concomitant]
     Active Substance: LANSOPRAZOLE
     Indication: PROPHYLAXIS
     Route: 048
  14. POMALYST [Suspect]
     Active Substance: POMALIDOMIDE
     Route: 048
     Dates: start: 20151029, end: 20151111
  15. POMALYST [Suspect]
     Active Substance: POMALIDOMIDE
     Route: 048
     Dates: start: 20151203, end: 20151223
  16. OLOPATADINE HYDROCHLORIDE. [Suspect]
     Active Substance: OLOPATADINE HYDROCHLORIDE
     Indication: PROPHYLAXIS
     Route: 048
  17. ACICLOVIR [Concomitant]
     Active Substance: ACYCLOVIR
     Indication: PROPHYLAXIS
     Route: 048
  18. RISPERDAL [Concomitant]
     Active Substance: RISPERIDONE
     Indication: PRODUCT USED FOR UNKNOWN INDICATION
     Route: 048
  19. BIO-THREE [Concomitant]
     Active Substance: HERBALS
     Indication: PROPHYLAXIS
     Route: 048
  20. PANTETHINE [Concomitant]
     Active Substance: PANTETHINE
     Indication: PROPHYLAXIS
     Route: 048
  21. TRANSAMIN [Concomitant]
     Active Substance: TRANEXAMIC ACID
     Indication: PRODUCT USED FOR UNKNOWN INDICATION
     Route: 065
  22. POMALYST [Suspect]
     Active Substance: POMALIDOMIDE
     Route: 048
     Dates: start: 20150928, end: 20151018
  23. LENADEX [Suspect]
     Active Substance: DEXAMETHASONE ACETATE
     Route: 048
     Dates: start: 20151203, end: 20151224
  24. AMOBAN [Concomitant]
     Active Substance: ZOPICLONE
     Indication: PROPHYLAXIS
     Route: 048
  25. LENADEX [Suspect]
     Active Substance: DEXAMETHASONE ACETATE
     Route: 048
     Dates: start: 20151029, end: 20151119
  26. LYRICA [Concomitant]
     Active Substance: PREGABALIN
     Indication: PRODUCT USED FOR UNKNOWN INDICATION
     Route: 048
  27. POMALYST [Suspect]
     Active Substance: POMALIDOMIDE
     Indication: PLASMA CELL MYELOMA RECURRENT
     Route: 048
     Dates: start: 20150611, end: 20150614
  28. PROMAC [Concomitant]
     Active Substance: NITROFURANTOIN
     Indication: PROPHYLAXIS
     Route: 048
  29. CRAVIT [Concomitant]
     Active Substance: LEVOFLOXACIN
     Indication: PROPHYLAXIS
     Route: 048
  30. FEXOFENADINE HYDROCHLORIDE. [Suspect]
     Active Substance: FEXOFENADINE HYDROCHLORIDE
     Indication: PRODUCT USED FOR UNKNOWN INDICATION
     Route: 048
  31. MORPHINE HYDROCHLORIDE HYDRATE [Concomitant]
     Active Substance: MORPHINE HYDROCHLORIDE
     Indication: PRODUCT USED FOR UNKNOWN INDICATION
     Route: 041

REACTIONS (16)
  - Pyrexia [Recovering/Resolving]
  - Constipation [Recovering/Resolving]
  - Haemoglobin decreased [Recovering/Resolving]
  - Pneumonia [Recovering/Resolving]
  - Rash [Recovering/Resolving]
  - Nausea [Recovered/Resolved]
  - Myoclonus [Recovered/Resolved]
  - Platelet count decreased [Not Recovered/Not Resolved]
  - Anaemia [Recovering/Resolving]
  - Pneumonia [Recovering/Resolving]
  - Vomiting [Recovered/Resolved]
  - Constipation [Recovered/Resolved]
  - Neutrophil count decreased [Not Recovered/Not Resolved]
  - Decreased appetite [Recovering/Resolving]
  - Anaemia [Not Recovered/Not Resolved]
  - Septic shock [Recovering/Resolving]

NARRATIVE: CASE EVENT DATE: 20150614
